FAERS Safety Report 19890630 (Version 1)
Quarter: 2021Q3

REPORT INFORMATION
  Report Type: Spontaneous
  Country: CN (occurrence: CN)
  Receive Date: 20210928
  Receipt Date: 20210928
  Transmission Date: 20211014
  Serious: Yes (Other)
  Sender: FDA-Public Use
  Company Number: CN-ABBVIE-21K-035-4095843-00

PATIENT
  Age: 44 Year
  Sex: Female
  Weight: 53 kg

DRUGS (3)
  1. OLANZAPINE. [Concomitant]
     Active Substance: OLANZAPINE
     Dosage: DOSE INCREASED
     Route: 065
     Dates: start: 20180706, end: 20180710
  2. OLANZAPINE. [Concomitant]
     Active Substance: OLANZAPINE
     Indication: PRODUCT USED FOR UNKNOWN INDICATION
     Dosage: EVERY NIGHT
     Route: 065
     Dates: start: 20180705, end: 201807
  3. DEPAKINE CHRONO [Suspect]
     Active Substance: VALPROATE SODIUM
     Indication: HYPERTHYROIDISM
     Route: 048
     Dates: start: 20180705, end: 20180710

REACTIONS (2)
  - Poor quality sleep [Recovering/Resolving]
  - Delirium [Recovering/Resolving]

NARRATIVE: CASE EVENT DATE: 20180708
